FAERS Safety Report 10064407 (Version 1)
Quarter: 2014Q2

REPORT INFORMATION
  Report Type: Spontaneous
  Country: TR (occurrence: None)
  Receive Date: 20140404
  Receipt Date: 20140404
  Transmission Date: 20141212
  Serious: Yes (Other)
  Sender: FDA-Public Use
  Company Number: 2203548

PATIENT
  Age: 26 Year
  Sex: 0

DRUGS (6)
  1. VINCRISTINE SULFATE [Suspect]
     Indication: IMMUNE THROMBOCYTOPENIC PURPURA
  2. IMMUNOGLOBULIN [Suspect]
     Indication: IMMUNE THROMBOCYTOPENIC PURPURA
     Route: 042
  3. METHYLPREDNISOLONE [Suspect]
     Indication: IMMUNE THROMBOCYTOPENIC PURPURA
  4. ORAL CONTRACEPTIVE NOS [Suspect]
     Indication: MENORRHAGIA
     Route: 048
  5. ELTROMBOPAG [Suspect]
     Indication: IMMUNE THROMBOCYTOPENIC PURPURA
     Route: 048
  6. DANAZOL [Suspect]
     Indication: IMMUNE THROMBOCYTOPENIC PURPURA

REACTIONS (3)
  - Intracardiac thrombus [None]
  - Pulmonary thrombosis [None]
  - Drug interaction [None]
